FAERS Safety Report 16062047 (Version 1)
Quarter: 2019Q1

REPORT INFORMATION
  Report Type: Spontaneous
  Country: JP (occurrence: JP)
  Receive Date: 20190312
  Receipt Date: 20190312
  Transmission Date: 20190418
  Serious: Yes (Other)
  Sender: FDA-Public Use
  Company Number: JP-TEVA-2019-JP-1023245

PATIENT
  Age: 68 Year
  Sex: Male

DRUGS (9)
  1. RIBAVIRIN. [Suspect]
     Active Substance: RIBAVIRIN
     Indication: HEPATITIS C
     Dosage: REDUCED ON DAY 11 DUE TO A DECREASE IN HAEMOGLOBIN.
     Route: 065
  2. AMINOLEBAN EN [Concomitant]
     Active Substance: UNSPECIFIED INGREDIENT
     Indication: HEPATITIS C
     Route: 065
  3. SOFOSBUVIR/LEDIPASVIR [Suspect]
     Active Substance: LEDIPASVIR\SOFOSBUVIR
     Indication: HEPATITIS C
     Dosage: LEDIPASVIR/SOFOSBUVIR (90 MG/DAY AND 400 MG/DAY, RESPECTIVELY)
     Route: 065
  4. RIBAVIRIN. [Suspect]
     Active Substance: RIBAVIRIN
     Indication: HEPATITIS C
     Dosage: REDUCED TO 200 MG EVERY OTHER DAY ON DAY 14 DUE A DECREASE IN HAEMOGLOBIN.
     Route: 065
  5. FUROSEMIDE. [Suspect]
     Active Substance: FUROSEMIDE
     Indication: DIURETIC THERAPY
     Route: 065
  6. RIBAVIRIN. [Suspect]
     Active Substance: RIBAVIRIN
     Indication: HEPATITIS C
     Dosage: STARTED AT TWO-THIRDS OF THE NORMAL DOSE DOSE DUE TO UNDERLYING ANAEMIA.
     Route: 065
  7. TOLVAPTAN [Suspect]
     Active Substance: TOLVAPTAN
     Indication: DIURETIC THERAPY
     Route: 065
  8. URSODEOXYCHOLIC ACID [Concomitant]
     Active Substance: URSODIOL
     Indication: HEPATITIS C
     Route: 048
  9. LACTULOSE. [Concomitant]
     Active Substance: LACTULOSE
     Indication: HEPATITIS C
     Route: 048

REACTIONS (7)
  - Asterixis [Unknown]
  - Insomnia [Unknown]
  - Condition aggravated [Unknown]
  - Fatigue [Unknown]
  - Haemoglobin decreased [Unknown]
  - Dehydration [Unknown]
  - Hepatic encephalopathy [Recovering/Resolving]
